FAERS Safety Report 4983975-1 (Version None)
Quarter: 2006Q2

REPORT INFORMATION
  Report Type: 
  Country: None (occurrence: None)
  Receive Date: 20060426
  Receipt Date: 20060103
  Transmission Date: 20061013
  Serious: Yes (Hospitalization, Disabling)
  Sender: FDA-Public Use
  Company Number: CA-MERCK-0601CAN00013

PATIENT
  Age: 54 Year
  Sex: Male
  Weight: 94 kg

DRUGS (12)
  1. VIOXX [Suspect]
     Indication: MONARTHRITIS
     Route: 048
     Dates: start: 20000801, end: 20030801
  2. VIOXX [Suspect]
     Route: 048
     Dates: start: 20000101
  3. OMEPRAZOLE MAGNESIUM [Concomitant]
     Indication: GASTROOESOPHAGEAL REFLUX DISEASE
     Route: 048
     Dates: start: 19980101
  4. BETAMETHASONE VALERATE [Concomitant]
     Route: 065
     Dates: start: 20000501
  5. AMOXICILLIN [Concomitant]
     Route: 065
     Dates: start: 20000228
  6. SERTRALINE HYDROCHLORIDE [Concomitant]
     Route: 065
     Dates: start: 20011002
  7. ACETAMINOPHEN AND CODEINE PHOSPHATE [Concomitant]
     Route: 065
     Dates: start: 20000704
  8. HYDROCORTISONE [Concomitant]
     Route: 065
     Dates: start: 20020322
  9. TERBINAFINE [Concomitant]
     Route: 065
     Dates: start: 20020322
  10. VALACYCLOVIR HYDROCHLORIDE [Concomitant]
     Route: 065
     Dates: start: 20021101
  11. KETOCONAZOLE [Concomitant]
     Route: 065
     Dates: start: 20021121
  12. ACYCLOVIR [Concomitant]
     Indication: TINEA PEDIS
     Route: 065

REACTIONS (10)
  - ACUTE MYOCARDIAL INFARCTION [None]
  - BLOOD CHOLESTEROL INCREASED [None]
  - CORONARY ARTERY DISEASE [None]
  - DYSPHAGIA [None]
  - EMOTIONAL DISTRESS [None]
  - ERECTILE DYSFUNCTION [None]
  - HIATUS HERNIA [None]
  - NASAL CONGESTION [None]
  - PREMATURE EJACULATION [None]
  - STOMACH DISCOMFORT [None]
